FAERS Safety Report 19509792 (Version 1)
Quarter: 2021Q3

REPORT INFORMATION
  Report Type: Other
  Country: US (occurrence: US)
  Receive Date: 20210709
  Receipt Date: 20210709
  Transmission Date: 20211014
  Serious: No
  Sender: FDA-Public Use
  Company Number: US-NEUROCRINE BIOSCIENCES INC.-2021NBI03381

PATIENT

DRUGS (3)
  1. INGREZZA [Suspect]
     Active Substance: VALBENAZINE
     Indication: EXTRAPYRAMIDAL DISORDER
     Dosage: 80 MILLIGRAM, QD
     Route: 048
     Dates: start: 20210105
  2. INGREZZA [Suspect]
     Active Substance: VALBENAZINE
     Indication: MOVEMENT DISORDER
  3. VITAE [Concomitant]
     Dosage: UNK

REACTIONS (3)
  - Sinus operation [Unknown]
  - Off label use [Unknown]
  - Respiratory symptom [Unknown]

NARRATIVE: CASE EVENT DATE: 2021
